FAERS Safety Report 7270392-7 (Version None)
Quarter: 2011Q1

REPORT INFORMATION
  Report Type: 
  Country: None (occurrence: None)
  Receive Date: 20110202
  Receipt Date: 20110120
  Transmission Date: 20110831
  Serious: Yes (Life-Threatening, Other)
  Sender: FDA-Public Use
  Company Number: US-ELI_LILLY_AND_COMPANY-US201101005585

PATIENT
  Age: 57 Year
  Sex: Male

DRUGS (1)
  1. EFFIENT [Suspect]
     Indication: PLATELET AGGREGATION INHIBITION
     Dosage: 10 MG, UNKNOWN
     Route: 065

REACTIONS (2)
  - OFF LABEL USE [None]
  - ANAPHYLACTOID REACTION [None]
